FAERS Safety Report 10618632 (Version 1)
Quarter: 2014Q4

REPORT INFORMATION
  Report Type: Report from Study
  Country: DE (occurrence: None)
  Receive Date: 20141125
  Receipt Date: 20141125
  Transmission Date: 20150529
  Serious: Yes (Hospitalization, Other)
  Sender: FDA-Public Use
  Company Number: DE2014GSK024289

PATIENT
  Age: 63 Year
  Sex: Male

DRUGS (6)
  1. L THYROXINE (LEVOTHYROXINE SODIUM) [Concomitant]
  2. TRUVADA [Suspect]
     Active Substance: EMTRICITABINE\TENOFOVIR DISOPROXIL FUMARATE
     Indication: HIV INFECTION
     Dates: start: 20041115
  3. KALETRA [Suspect]
     Active Substance: LOPINAVIR\RITONAVIR
     Indication: HIV INFECTION
     Dates: start: 20091104
  4. ASS PROTECT (ACETYLSALICYLIC ACID) [Concomitant]
  5. MARAVIROC (MARAVIROC) UNKNOWN [Suspect]
     Active Substance: MARAVIROC
     Indication: HIV INFECTION
     Dates: start: 20101013
  6. RALTEGRAVIR (RALTEGRAVIR) [Suspect]
     Active Substance: RALTEGRAVIR
     Indication: HIV INFECTION
     Dates: start: 20101013

REACTIONS (2)
  - Femoral artery occlusion [None]
  - Embolism arterial [None]

NARRATIVE: CASE EVENT DATE: 20140412
